FAERS Safety Report 14863907 (Version 1)
Quarter: 2018Q2

REPORT INFORMATION
  Report Type: Spontaneous
  Country: US (occurrence: US)
  Receive Date: 20180508
  Receipt Date: 20180508
  Transmission Date: 20180711
  Serious: No
  Sender: FDA-Public Use
  Company Number: US-ALKERMES INC.-ALK-2017-002983

PATIENT
  Age: 19 Year
  Sex: Male
  Weight: 84.35 kg

DRUGS (2)
  1. VIVITROL [Suspect]
     Active Substance: NALTREXONE
     Indication: DRUG DEPENDENCE
     Dosage: 380 MG, QMO
     Route: 030
     Dates: start: 20161129
  2. ZOLOFT [Concomitant]
     Active Substance: SERTRALINE HYDROCHLORIDE
     Indication: PRODUCT USED FOR UNKNOWN INDICATION
     Dosage: UNK

REACTIONS (4)
  - Needle issue [Recovered/Resolved]
  - Injection site reaction [Recovered/Resolved]
  - Lack of injection site rotation [Not Recovered/Not Resolved]
  - Injection site scar [Recovered/Resolved]

NARRATIVE: CASE EVENT DATE: 20170623
